FAERS Safety Report 6732905-0 (Version None)
Quarter: 2010Q2

REPORT INFORMATION
  Report Type: 
  Country: None (occurrence: None)
  Receive Date: 20100517
  Receipt Date: 20100507
  Transmission Date: 20101027
  Serious: Yes (Disabling, Congenital Anomaly)
  Sender: FDA-Public Use
  Company Number: B0652342A

PATIENT
  Age: 4 Year
  Sex: Female

DRUGS (6)
  1. LAMIVUDINE [Suspect]
     Indication: ANTIVIRAL PROPHYLAXIS
     Dosage: TRANSPLACENTARY
     Route: 064
  2. NELFINAVIR MESYLATE [Suspect]
     Indication: ANTIVIRAL PROPHYLAXIS
     Dosage: TRANSPLACENTARY
     Route: 064
  3. LAMIVUDINE [Suspect]
     Indication: ANTIVIRAL PROPHYLAXIS
  4. NELFINAVIR MESYLATE [Suspect]
     Indication: ANTIVIRAL PROPHYLAXIS
  5. RETROVIR [Suspect]
     Indication: ANTIVIRAL PROPHYLAXIS
     Dosage: TRANSPLACENTARY
     Route: 064
  6. RETROVIR [Suspect]
     Indication: ANTIVIRAL PROPHYLAXIS

REACTIONS (13)
  - ABASIA [None]
  - APHASIA [None]
  - BODY DYSMORPHIC DISORDER [None]
  - CATARACT [None]
  - CONGENITAL ANOMALY [None]
  - DEVELOPMENTAL DELAY [None]
  - HYPOTONIA [None]
  - LACTIC ACIDOSIS [None]
  - MATERNAL DRUGS AFFECTING FOETUS [None]
  - MITOCHONDRIAL TOXICITY [None]
  - MOVEMENT DISORDER [None]
  - PANCREATITIS [None]
  - PREMATURE BABY [None]
